FAERS Safety Report 22286468 (Version 1)
Quarter: 2023Q2

REPORT INFORMATION
  Report Type: Other
  Country: IT (occurrence: None)
  Receive Date: 20230505
  Receipt Date: 20230505
  Transmission Date: 20230721
  Serious: Yes (Hospitalization)
  Sender: FDA-Public Use
  Company Number: IT-ROCHE-3343639

PATIENT
  Age: 75 Year
  Sex: Female

DRUGS (3)
  1. OBINUTUZUMAB [Suspect]
     Active Substance: OBINUTUZUMAB
     Indication: Follicular lymphoma
     Dosage: 6 CYCLES
     Route: 065
     Dates: start: 202102, end: 202112
  2. BENDAMUSTINE [Suspect]
     Active Substance: BENDAMUSTINE
     Indication: Follicular lymphoma
     Dosage: 6 S-LINE CYCLES
     Route: 065
     Dates: start: 202007, end: 202012
  3. TOZINAMERAN [Concomitant]
     Active Substance: TOZINAMERAN
     Indication: COVID-19 prophylaxis
     Dosage: 3 DOSES
     Route: 065
     Dates: start: 202111

REACTIONS (3)
  - Pneumonia [Recovered/Resolved]
  - Interstitial lung disease [Recovered/Resolved]
  - COVID-19 [Recovered/Resolved]
